FAERS Safety Report 6756271-X (Version None)
Quarter: 2010Q2

REPORT INFORMATION
  Report Type: 
  Country: None (occurrence: None)
  Receive Date: 20100604
  Receipt Date: 20100526
  Transmission Date: 20101027
  Serious: Yes (Other)
  Sender: FDA-Public Use
  Company Number: US-ROCHE-698883

PATIENT
  Sex: Female
  Weight: 60.8 kg

DRUGS (2)
  1. CAPECITABINE [Suspect]
     Dosage: 2 TABS IN MORNING AND 3 TABS IN EVENING, 1 WEEK ON AND 1 WEEK OFF
     Route: 048
     Dates: start: 20091024, end: 20100413
  2. TYKERB [Concomitant]

REACTIONS (1)
  - MALIGNANT NEOPLASM PROGRESSION [None]
